FAERS Safety Report 10841630 (Version 2)
Quarter: 2015Q1

REPORT INFORMATION
  Report Type: Spontaneous
  Country: GB (occurrence: GB)
  Receive Date: 20150220
  Receipt Date: 20150304
  Transmission Date: 20150721
  Serious: Yes (Other)
  Sender: FDA-Public Use
  Company Number: GB-AUROBINDO-AUR-APL-2015-01337

PATIENT
  Age: 55 Year
  Sex: Female

DRUGS (1)
  1. CIPROFLOXACIN TABLETS 750MG [Suspect]
     Active Substance: CIPROFLOXACIN
     Indication: PROPHYLAXIS
     Dosage: 750 MG, UNK
     Route: 065

REACTIONS (9)
  - Oxygen saturation decreased [Unknown]
  - Choking [Unknown]
  - Lung disorder [Unknown]
  - Dyspnoea [Unknown]
  - Chest pain [Unknown]
  - Diaphragmatic disorder [Unknown]
  - Dysphagia [Unknown]
  - Atelectasis [Unknown]
  - Dry mouth [Unknown]
